FAERS Safety Report 5262389-3 (Version None)
Quarter: 2007Q1

REPORT INFORMATION
  Report Type: 
  Country: None (occurrence: None)
  Receive Date: 20070309
  Receipt Date: 20070309
  Transmission Date: 20070707
  Serious: Yes (Other)
  Sender: FDA-Public Use
  Company Number: None

PATIENT
  Age: 57 Year
  Sex: Male
  Weight: 73.4827 kg

DRUGS (4)
  1. LIPITOR [Suspect]
     Indication: HYPERCHOLESTEROLAEMIA
     Dosage: 10 MG QD PO OTIC
     Route: 048
     Dates: start: 20070101, end: 20070101
  2. LIPITOR [Suspect]
     Indication: HYPERCHOLESTEROLAEMIA
     Dosage: 10 MG QD PO OTIC
     Route: 048
     Dates: start: 20010101, end: 20070305
  3. BENICAR HCT -OLMESARTAN MEDROXOMIL / HYDROCHLOROTHIAZIDE [Concomitant]
  4. H 2 ANTAGONIST [Concomitant]

REACTIONS (3)
  - DISEASE PROGRESSION [None]
  - PHARMACEUTICAL PRODUCT COMPLAINT [None]
  - POLYNEUROPATHY [None]
